FAERS Safety Report 18114296 (Version 2)
Quarter: 2020Q4

REPORT INFORMATION
  Report Type: Spontaneous
  Country: ES (occurrence: ES)
  Receive Date: 20200805
  Receipt Date: 20201015
  Transmission Date: 20210113
  Serious: Yes (Other)
  Sender: FDA-Public Use
  Company Number: ES-ASTRAZENECA-2020SE94839

PATIENT
  Age: 47 Year
  Sex: Female
  Weight: 73 kg

DRUGS (5)
  1. XIGDUO XR [Suspect]
     Active Substance: DAPAGLIFLOZIN PROPANEDIOL\METFORMIN HYDROCHLORIDE
     Indication: TYPE 1 DIABETES MELLITUS
     Dosage: ONE TABLET 2 TIMES A DAY
     Route: 048
     Dates: start: 202008
  2. TOUJEO [Concomitant]
     Active Substance: INSULIN GLARGINE
     Dosage: 14
     Route: 065
     Dates: start: 20200728
  3. XIGDUO XR [Suspect]
     Active Substance: DAPAGLIFLOZIN PROPANEDIOL\METFORMIN HYDROCHLORIDE
     Indication: TYPE 1 DIABETES MELLITUS
     Dosage: HALF A TABLET 2 TIMES A DAY
     Route: 048
     Dates: start: 202008, end: 202008
  4. XIGDUO XR [Suspect]
     Active Substance: DAPAGLIFLOZIN PROPANEDIOL\METFORMIN HYDROCHLORIDE
     Indication: TYPE 1 DIABETES MELLITUS
     Route: 048
     Dates: start: 202006, end: 20200728
  5. XIGDUO XR [Suspect]
     Active Substance: DAPAGLIFLOZIN PROPANEDIOL\METFORMIN HYDROCHLORIDE
     Indication: TYPE 1 DIABETES MELLITUS
     Route: 048
     Dates: start: 20200728

REACTIONS (13)
  - Fatigue [Unknown]
  - Off label use [Unknown]
  - Dry mouth [Unknown]
  - Nausea [Unknown]
  - Decreased appetite [Unknown]
  - Weight decreased [Unknown]
  - Diarrhoea [Unknown]
  - Pollakiuria [Unknown]
  - Urine ketone body present [Unknown]
  - Abdominal pain [Unknown]
  - Dizziness [Unknown]
  - Blood glucose abnormal [Unknown]
  - Ketonuria [Unknown]

NARRATIVE: CASE EVENT DATE: 202006
